FAERS Safety Report 10086908 (Version 1)
Quarter: 2014Q2

REPORT INFORMATION
  Report Type: Spontaneous
  Country: US (occurrence: US)
  Receive Date: 20140418
  Receipt Date: 20140418
  Transmission Date: 20141212
  Serious: Yes (Other)
  Sender: FDA-Public Use
  Company Number: US-ACTAVIS-2014-07637

PATIENT
  Sex: Male

DRUGS (1)
  1. URSODIOL (WATSON LABORATORIES) [Suspect]
     Indication: BILIARY CIRRHOSIS PRIMARY
     Dosage: UNK, UNKNOWN
     Route: 065
     Dates: start: 1991

REACTIONS (1)
  - Hepatocellular carcinoma [Unknown]
